FAERS Safety Report 6467621-6 (Version None)
Quarter: 2009Q4

REPORT INFORMATION
  Report Type: 
  Country: None (occurrence: None)
  Receive Date: 20091127
  Receipt Date: 20091111
  Transmission Date: 20100525
  Serious: Yes (Other)
  Sender: FDA-Public Use
  Company Number: 2009003470

PATIENT
  Age: 69 Year
  Sex: Female
  Weight: 57.5 kg

DRUGS (1)
  1. ERLOTINIB HYDROCHLORIDE [Suspect]
     Indication: LUNG ADENOCARCINOMA
     Dosage: 150 MG,QD,ORAL
     Route: 048
     Dates: start: 20090210, end: 20090227

REACTIONS (1)
  - HENOCH-SCHONLEIN PURPURA [None]
